FAERS Safety Report 6010122-X (Version None)
Quarter: 2008Q4

REPORT INFORMATION
  Report Type: 
  Country: None (occurrence: None)
  Receive Date: 20081218
  Receipt Date: 20081210
  Transmission Date: 20090506
  Serious: Yes (Hospitalization, Other)
  Sender: FDA-Public Use
  Company Number: FR-ASTRAZENECA-2008CG01491

PATIENT
  Age: 79 Year
  Sex: Female

DRUGS (8)
  1. ARIMIDEX [Suspect]
     Indication: BREAST CANCER FEMALE
     Route: 048
     Dates: start: 20080711, end: 20080901
  2. LEVOTHYROX [Concomitant]
     Indication: HYPOTHYROIDISM
  3. AMLOD [Concomitant]
     Indication: HYPERTENSION
  4. ALDACTAZINE [Concomitant]
     Indication: HYPERTENSION
  5. VASTAREL [Concomitant]
     Indication: HYPERTENSION
  6. VASCOR [Concomitant]
     Indication: HYPERCHOLESTEROLAEMIA
  7. SINTROM [Concomitant]
     Indication: ARRHYTHMIA
  8. LOVENOX [Concomitant]
     Indication: DEEP VEIN THROMBOSIS

REACTIONS (1)
  - PARANEOPLASTIC PEMPHIGUS [None]
